FAERS Safety Report 7819360-4 (Version None)
Quarter: 2011Q4

REPORT INFORMATION
  Report Type: 
  Country: None (occurrence: None)
  Receive Date: 20111018
  Receipt Date: 20110331
  Transmission Date: 20120403
  Serious: No
  Sender: FDA-Public Use
  Company Number: US-ASTRAZENECA-2011SE11531

PATIENT
  Age: 46 Year
  Sex: Male
  Weight: 96.6 kg

DRUGS (2)
  1. SYMBICORT [Suspect]
     Dosage: 10 DOSES IN 3 SPRAYS
     Route: 055
  2. SYMBICORT [Suspect]
     Indication: ASTHMA
     Dosage: 160/4.5 DOSAGE STRENGTH, 2 PUFFS TWICE DAILY
     Route: 055
     Dates: start: 20090101

REACTIONS (2)
  - ACCIDENTAL OVERDOSE [None]
  - CHEST PAIN [None]
